FAERS Safety Report 10939306 (Version 2)
Quarter: 2015Q2

REPORT INFORMATION
  Report Type: Spontaneous
  Country: US (occurrence: US)
  Receive Date: 20150322
  Receipt Date: 20150525
  Transmission Date: 20150821
  Serious: No
  Sender: FDA-Public Use
  Company Number: US-JNJFOC-20141008260

PATIENT
  Age: 34 Year
  Sex: Female
  Weight: 66.68 kg

DRUGS (2)
  1. NUCYNTA [Suspect]
     Active Substance: TAPENTADOL HYDROCHLORIDE
     Indication: PAIN
     Dosage: EVERY 4 HOURS
     Route: 048
     Dates: start: 201208
  2. BUSPAR [Concomitant]
     Active Substance: BUSPIRONE HYDROCHLORIDE
     Indication: ANXIETY
     Dosage: TWICE A DAY
     Route: 048
     Dates: start: 201210, end: 201409

REACTIONS (4)
  - Thyroid disorder [Unknown]
  - Product colour issue [Unknown]
  - Product quality issue [Unknown]
  - Pruritus [Not Recovered/Not Resolved]

NARRATIVE: CASE EVENT DATE: 201402
